FAERS Safety Report 16983303 (Version 1)
Quarter: 2019Q4

REPORT INFORMATION
  Report Type: Spontaneous
  Country: GB (occurrence: GB)
  Receive Date: 20191101
  Receipt Date: 20191101
  Transmission Date: 20200122
  Serious: Yes (Disabling)
  Sender: FDA-Public Use
  Company Number: GB-MYLANLABS-2019M1103532

PATIENT
  Age: 49 Year
  Sex: Female
  Weight: 52 kg

DRUGS (1)
  1. PREGABALIN. [Suspect]
     Active Substance: PREGABALIN
     Indication: PAIN
     Dosage: 25 MILLIGRAM
     Route: 048
     Dates: start: 20160110

REACTIONS (3)
  - Decreased appetite [Not Recovered/Not Resolved]
  - Hypersomnia [Not Recovered/Not Resolved]
  - Withdrawal syndrome [Unknown]

NARRATIVE: CASE EVENT DATE: 20180110
